FAERS Safety Report 4742779-5 (Version None)
Quarter: 2005Q3

REPORT INFORMATION
  Report Type: 
  Country: None (occurrence: None)
  Receive Date: 20050811
  Receipt Date: 20050510
  Transmission Date: 20060218
  Serious: Yes (Life-Threatening, Hospitalization)
  Sender: FDA-Public Use
  Company Number: US-MERCK-0505USA01216

PATIENT

DRUGS (2)
  1. VYTORIN [Suspect]
     Route: 048
  2. GEMFIBROZIL [Concomitant]
     Route: 065

REACTIONS (3)
  - CARDIAC ARREST [None]
  - RENAL FAILURE [None]
  - RHABDOMYOLYSIS [None]
